FAERS Safety Report 7030321-8 (Version None)
Quarter: 2010Q4

REPORT INFORMATION
  Report Type: 
  Country: None (occurrence: None)
  Receive Date: 20101001
  Receipt Date: 20100927
  Transmission Date: 20110411
  Serious: Yes (Other)
  Sender: FDA-Public Use
  Company Number: 2005-08-0259

PATIENT
  Age: 59 Year
  Sex: Female

DRUGS (3)
  1. INTRON A [Suspect]
     Indication: ALLERGIC GRANULOMATOUS ANGIITIS
     Dosage: 3 MIU; TIW; SC, 5 MIU; TIW; SC
     Route: 058
     Dates: start: 19970401, end: 20010401
  2. INTRON A [Suspect]
     Indication: ALLERGIC GRANULOMATOUS ANGIITIS
     Dosage: 3 MIU; TIW; SC, 5 MIU; TIW; SC
     Route: 058
  3. PREDNISOLONE [Suspect]
     Indication: ALLERGIC GRANULOMATOUS ANGIITIS
     Dosage: 8 MG; QD;

REACTIONS (7)
  - ARRHYTHMIA [None]
  - BRONCHITIS [None]
  - CARDIAC DISORDER [None]
  - DISEASE RECURRENCE [None]
  - ORAL CANDIDIASIS [None]
  - PROGRESSIVE MULTIFOCAL LEUKOENCEPHALOPATHY [None]
  - PSYCHOTIC DISORDER [None]
